FAERS Safety Report 7803279-9 (Version None)
Quarter: 2011Q4

REPORT INFORMATION
  Report Type: 
  Country: None (occurrence: None)
  Receive Date: 20111007
  Receipt Date: 20110930
  Transmission Date: 20120403
  Serious: Yes (Hospitalization)
  Sender: FDA-Public Use
  Company Number: ES-BRISTOL-MYERS SQUIBB COMPANY-16090136

PATIENT
  Sex: Male

DRUGS (2)
  1. REYATAZ [Suspect]
     Route: 048
     Dates: end: 20110901
  2. TRUVADA [Concomitant]
     Dates: end: 20110901

REACTIONS (4)
  - BLOOD BILIRUBIN INCREASED [None]
  - RENAL FAILURE ACUTE [None]
  - FANCONI SYNDROME [None]
  - DRUG LEVEL INCREASED [None]
